FAERS Safety Report 16332236 (Version 1)
Quarter: 2019Q2

REPORT INFORMATION
  Report Type: Spontaneous
  Country: LU (occurrence: LU)
  Receive Date: 20190520
  Receipt Date: 20190520
  Transmission Date: 20190711
  Serious: Yes (Hospitalization)
  Sender: FDA-Public Use
  Company Number: LU-PFIZER INC-2019208684

PATIENT
  Age: 36 Year
  Sex: Female

DRUGS (2)
  1. CYTOTEC [Suspect]
     Active Substance: MISOPROSTOL
     Dosage: 2 DF, SINGLE (200 MG, SCORED TABLET )
     Route: 067
     Dates: start: 20190325, end: 20190325
  2. CYTOTEC [Suspect]
     Active Substance: MISOPROSTOL
     Indication: ABORTION INCOMPLETE
     Dosage: 2 DF, SINGLE (200 MG, SCORED TABLET )
     Route: 048
     Dates: start: 20190325, end: 20190325

REACTIONS (3)
  - Product use in unapproved indication [Recovered/Resolved]
  - Off label use [Recovered/Resolved]
  - Post abortion haemorrhage [Recovered/Resolved]

NARRATIVE: CASE EVENT DATE: 20190325
